FAERS Safety Report 7313123-4 (Version None)
Quarter: 2011Q1

REPORT INFORMATION
  Report Type: 
  Country: None (occurrence: None)
  Receive Date: 20110215
  Receipt Date: 20110215
  Transmission Date: 20110831
  Serious: No
  Sender: FDA-Public Use
  Company Number: None

PATIENT
  Age: 68 Year
  Sex: Male
  Weight: 67.7 kg

DRUGS (1)
  1. METHOTREXATE [Suspect]
     Dosage: 7.5 MG QWEEK PO
     Route: 048
     Dates: start: 20100526, end: 20101215

REACTIONS (1)
  - ANAEMIA MACROCYTIC [None]
